FAERS Safety Report 9679985 (Version 1)
Quarter: 2013Q4

REPORT INFORMATION
  Report Type: Report from Study
  Country: BR (occurrence: BR)
  Receive Date: 20131110
  Receipt Date: 20131110
  Transmission Date: 20140711
  Serious: Yes (Hospitalization, Other)
  Sender: FDA-Public Use
  Company Number: PHHY2013BR127139

PATIENT
  Sex: Male
  Weight: 55 kg

DRUGS (1)
  1. DIOVAN AMLO FIX [Suspect]
     Indication: BLOOD PRESSURE ABNORMAL
     Dosage: 1 DF, (320/10 MG) DAILY AT 6 PM
     Route: 048

REACTIONS (1)
  - Cerebrovascular accident [Recovering/Resolving]
